FAERS Safety Report 5657282-8 (Version None)
Quarter: 2008Q1

REPORT INFORMATION
  Report Type: 
  Country: None (occurrence: None)
  Receive Date: 20080310
  Receipt Date: 20080227
  Transmission Date: 20080703
  Serious: Yes (Hospitalization)
  Sender: FDA-Public Use
  Company Number: GB-PFIZER INC-2008018590

PATIENT
  Age: 59 Year
  Sex: Male

DRUGS (6)
  1. ATORVASTATIN CALCIUM [Suspect]
     Indication: MYOCARDIAL INFARCTION
     Route: 048
     Dates: start: 20080118, end: 20080204
  2. PERINDOPRIL [Suspect]
     Indication: MYOCARDIAL INFARCTION
     Route: 048
     Dates: start: 20080121, end: 20080205
  3. ASPIRIN [Concomitant]
     Indication: MYOCARDIAL INFARCTION
     Dosage: DAILY DOSE:75MG-FREQ:DAILY
     Route: 048
  4. BISOPROLOL FUMARATE [Concomitant]
     Indication: MYOCARDIAL INFARCTION
     Dosage: DAILY DOSE:2.5MG-FREQ:DAILY
     Route: 048
  5. CLOPIDOGREL [Concomitant]
     Indication: MYOCARDIAL INFARCTION
     Dosage: DAILY DOSE:75MG-FREQ:DAILY
     Route: 048
  6. NITROGLYCERIN [Concomitant]
     Indication: MYOCARDIAL INFARCTION
     Dosage: TEXT:2 DOSE FORMS
     Route: 060

REACTIONS (2)
  - ANGIOEDEMA [None]
  - URTICARIA [None]
